FAERS Safety Report 5055690-X (Version None)
Quarter: 2006Q3

REPORT INFORMATION
  Report Type: 
  Country: None (occurrence: None)
  Receive Date: 20060714
  Receipt Date: 20060627
  Transmission Date: 20061208
  Serious: Yes (Hospitalization)
  Sender: FDA-Public Use
  Company Number: US200606005685

PATIENT
  Sex: Male

DRUGS (3)
  1. HUMALOG [Suspect]
     Indication: DIABETES MELLITUS
     Dosage: SUBCUTANEOUS
     Route: 058
     Dates: start: 20060101
  2. HUMULIN R [Suspect]
     Indication: DIABETES MELLITUS
     Dosage: SEE IMAGE
     Route: 058
  3. LANTUS [Concomitant]

REACTIONS (11)
  - ABDOMINAL PAIN [None]
  - BLOOD GLUCOSE INCREASED [None]
  - DIARRHOEA [None]
  - INJECTION SITE ANAESTHESIA [None]
  - INJECTION SITE DISCOLOURATION [None]
  - INSULIN RESISTANCE [None]
  - IRRITABLE BOWEL SYNDROME [None]
  - MALAISE [None]
  - PAIN IN EXTREMITY [None]
  - PANCREATIC DISORDER [None]
  - VOMITING [None]
